FAERS Safety Report 6860493-7 (Version None)
Quarter: 2010Q3

REPORT INFORMATION
  Report Type: 
  Country: None (occurrence: None)
  Receive Date: 20100720
  Receipt Date: 20100714
  Transmission Date: 20110219
  Serious: Yes (Hospitalization)
  Sender: FDA-Public Use
  Company Number: A0866606C

PATIENT
  Age: 76 Year
  Sex: Male
  Weight: 73.6 kg

DRUGS (2)
  1. ELTROMBOPAG [Suspect]
     Dosage: 50MG PER DAY
     Route: 048
     Dates: start: 20100615
  2. PLATELETS [Concomitant]

REACTIONS (3)
  - ASTHENIA [None]
  - FEBRILE NEUTROPENIA [None]
  - THROMBOCYTOPENIA [None]
